FAERS Safety Report 8821342 (Version 1)
Quarter: 2012Q4

REPORT INFORMATION
  Report Type: 
  Country: BR (occurrence: BR)
  Receive Date: 20121002
  Receipt Date: 20121002
  Transmission Date: 20130627
  Serious: Yes (Death)
  Sender: FDA-Public Use
  Company Number: BR-ABBOTT-12P-020-0989306-00

PATIENT
  Age: 45 Year
  Sex: Male

DRUGS (2)
  1. HUMIRA [Suspect]
     Indication: PSORIASIS
     Dosage: 2 injections at the same day
     Route: 058
     Dates: start: 20110506
  2. HUMIRA [Suspect]
     Route: 058

REACTIONS (1)
  - Myocardial infarction [Fatal]
